FAERS Safety Report 21392167 (Version 1)
Quarter: 2022Q3

REPORT INFORMATION
  Report Type: Spontaneous
  Country: US (occurrence: US)
  Receive Date: 20220929
  Receipt Date: 20220929
  Transmission Date: 20221027
  Serious: No
  Sender: FDA-Public Use
  Company Number: US-Blueprint Medicines Corporation-457

PATIENT
  Sex: Female

DRUGS (1)
  1. AYVAKIT [Suspect]
     Active Substance: AVAPRITINIB
     Indication: Haematopoietic neoplasm
     Route: 065
     Dates: start: 20210720

REACTIONS (7)
  - Fatigue [Unknown]
  - Sleep disorder [Unknown]
  - Visual impairment [Unknown]
  - Taste disorder [Unknown]
  - Weight increased [Unknown]
  - Photosensitivity reaction [Unknown]
  - Headache [Unknown]
